FAERS Safety Report 15642711 (Version 1)
Quarter: 2018Q4

REPORT INFORMATION
  Report Type: Spontaneous
  Country: US (occurrence: US)
  Receive Date: 20181121
  Receipt Date: 20181121
  Transmission Date: 20190205
  Serious: Yes (Congenital Anomaly, Other)
  Sender: FDA-Public Use
  Company Number: US-ASTELLAS-2018US049099

PATIENT
  Age: 5 Month
  Sex: Female

DRUGS (1)
  1. TACROLIMUS. [Suspect]
     Active Substance: TACROLIMUS
     Indication: FOETAL EXPOSURE DURING PREGNANCY
     Dosage: UNK, UNKNOWN FREQ.
     Route: 064

REACTIONS (6)
  - Hypotonia [Unknown]
  - Congestive cardiomyopathy [Unknown]
  - Dyspnoea [Unknown]
  - Poor feeding infant [Unknown]
  - Dysmorphism [Unknown]
  - Foot deformity [Unknown]
